FAERS Safety Report 22333287 (Version 1)
Quarter: 2023Q2

REPORT INFORMATION
  Report Type: Spontaneous
  Country: US (occurrence: None)
  Receive Date: 20230516
  Receipt Date: 20230516
  Transmission Date: 20230722
  Serious: No
  Sender: FDA-Public Use
  Company Number: None

PATIENT
  Sex: Female

DRUGS (1)
  1. IDHIFA [Suspect]
     Active Substance: ENASIDENIB MESYLATE
     Dosage: OTHER FREQUENCY : OTHER;?
     Route: 048

REACTIONS (3)
  - Therapy interrupted [None]
  - Blood bilirubin increased [None]
  - White blood cell count increased [None]
